FAERS Safety Report 4974402-9 (Version None)
Quarter: 2006Q2

REPORT INFORMATION
  Report Type: 
  Country: None (occurrence: None)
  Receive Date: 20060410
  Receipt Date: 20060404
  Transmission Date: 20061013
  Serious: Yes (Death)
  Sender: FDA-Public Use
  Company Number: 223397

PATIENT
  Age: 69 Year
  Sex: Female
  Weight: 66.7 kg

DRUGS (6)
  1. XOLAIR [Suspect]
     Indication: ASTHMA
     Dosage: 300 MG, SUBCUTANEOUS
     Route: 058
     Dates: start: 20041221, end: 20060221
  2. ALBUTEROL (ALBUTEROL/ALBUTEROL SULFATE) [Concomitant]
  3. NEXIUM [Concomitant]
  4. ASTELIN NASAL SPRAY (AZELASTINE HYDROCHLORIDE) [Concomitant]
  5. PREDNISONE [Concomitant]
  6. VIDORIA [Concomitant]

REACTIONS (2)
  - COLON CANCER [None]
  - MYOCARDIAL INFARCTION [None]
